FAERS Safety Report 15935258 (Version 2)
Quarter: 2019Q1

REPORT INFORMATION
  Report Type: Spontaneous
  Country: JP (occurrence: JP)
  Receive Date: 20190207
  Receipt Date: 20190328
  Transmission Date: 20190417
  Serious: Yes (Hospitalization, Other)
  Sender: FDA-Public Use
  Company Number: JP-TAKEDA-2019TJP002415

PATIENT
  Age: 42 Year
  Sex: Male
  Weight: 71.1 kg

DRUGS (6)
  1. IMURAN [Concomitant]
     Active Substance: AZATHIOPRINE
     Dosage: UNK
     Route: 065
  2. ENTYVIO [Suspect]
     Active Substance: VEDOLIZUMAB
     Indication: COLITIS ULCERATIVE
     Dosage: 300 MILLIGRAM
     Route: 041
     Dates: start: 20181121
  3. COLONEL [Concomitant]
     Active Substance: CALCIUM POLYCARBOPHIL
     Indication: IRRITABLE BOWEL SYNDROME
     Dosage: 500 MILLIGRAM, TID
     Route: 048
  4. AZANIN [Concomitant]
     Active Substance: AZATHIOPRINE
     Indication: COLITIS ULCERATIVE
     Dosage: 75 MILLIGRAM, QD
     Route: 048
  5. LIALDA [Concomitant]
     Active Substance: MESALAMINE
     Indication: COLITIS ULCERATIVE
     Dosage: 4800 MILLIGRAM, QD
     Route: 048
  6. MIYA-BM [Concomitant]
     Active Substance: CLOSTRIDIUM BUTYRICUM SPORES STRAIN M-55
     Indication: COLITIS ULCERATIVE
     Dosage: 3 DOSAGE FORM
     Route: 048

REACTIONS (3)
  - Bronchitis bacterial [Recovering/Resolving]
  - Vestibular neuronitis [Recovered/Resolved]
  - Influenza [Recovering/Resolving]

NARRATIVE: CASE EVENT DATE: 20180111
